FAERS Safety Report 7272751-5 (Version None)
Quarter: 2011Q1

REPORT INFORMATION
  Report Type: 
  Country: None (occurrence: None)
  Receive Date: 20110203
  Receipt Date: 20110128
  Transmission Date: 20110831
  Serious: No
  Sender: FDA-Public Use
  Company Number: US-PFIZER INC-2010170388

PATIENT
  Sex: Female
  Weight: 74.83 kg

DRUGS (4)
  1. PREMARIN [Suspect]
     Indication: HORMONE REPLACEMENT THERAPY
     Dosage: 1.25 MG, 1X/DAY
     Route: 048
     Dates: start: 19760101
  2. ACETYLSALICYLIC ACID [Concomitant]
     Dosage: FREQUENCY: AS NEEDED,
  3. TYLENOL-500 [Concomitant]
  4. BUSPAR [Concomitant]

REACTIONS (1)
  - ABDOMINAL DISCOMFORT [None]
